FAERS Safety Report 10167688 (Version 1)
Quarter: 2014Q2

REPORT INFORMATION
  Report Type: Spontaneous
  Country: US (occurrence: US)
  Receive Date: 20140512
  Receipt Date: 20140512
  Transmission Date: 20141212
  Serious: Yes (Hospitalization)
  Sender: FDA-Public Use
  Company Number: US-ACTAVIS-2014-09696

PATIENT
  Sex: Female

DRUGS (1)
  1. CLOPIDOGREL (ATLLC) [Suspect]
     Indication: ACUTE CORONARY SYNDROME
     Dosage: 75 MG, TOTAL
     Route: 065

REACTIONS (1)
  - Angioedema [Recovered/Resolved]
